FAERS Safety Report 25595824 (Version 1)
Quarter: 2025Q3

REPORT INFORMATION
  Report Type: Spontaneous
  Country: US (occurrence: US)
  Receive Date: 20250723
  Receipt Date: 20250723
  Transmission Date: 20251020
  Serious: Yes (Other)
  Sender: LUPIN
  Company Number: US-LUPIN PHARMACEUTICALS INC.-2025-06315

PATIENT
  Age: 71 Year
  Sex: Male

DRUGS (9)
  1. BRIMONIDINE [Suspect]
     Active Substance: BRIMONIDINE TARTRATE
     Indication: Glaucoma
  2. TRAVOPROST [Suspect]
     Active Substance: TRAVOPROST
     Indication: Glaucoma
  3. NETARSUDIL [Suspect]
     Active Substance: NETARSUDIL
     Indication: Glaucoma
  4. LATANOPROST\NETARSUDIL MESYLATE [Suspect]
     Active Substance: LATANOPROST\NETARSUDIL MESYLATE
     Indication: Glaucoma
  5. DORZOLAMIDE\TIMOLOL [Suspect]
     Active Substance: DORZOLAMIDE\TIMOLOL
     Indication: Glaucoma
  6. DORZOLAMIDE\TIMOLOL [Suspect]
     Active Substance: DORZOLAMIDE\TIMOLOL
  7. LATANOPROST [Suspect]
     Active Substance: LATANOPROST
     Indication: Glaucoma
  8. TIMOLOL [Suspect]
     Active Substance: TIMOLOL
     Indication: Glaucoma
  9. TIMOLOL [Suspect]
     Active Substance: TIMOLOL

REACTIONS (1)
  - Hypotony of eye [Recovering/Resolving]
